FAERS Safety Report 12602840 (Version 2)
Quarter: 2016Q3

REPORT INFORMATION
  Report Type: Spontaneous
  Country: PT (occurrence: PT)
  Receive Date: 20160728
  Receipt Date: 20160819
  Transmission Date: 20161109
  Serious: Yes (Other)
  Sender: FDA-Public Use
  Company Number: PT-TEVA-678890ISR

PATIENT
  Age: 72 Year
  Sex: Female

DRUGS (1)
  1. ENALAPRIL RATIOPHARM [Suspect]
     Active Substance: ENALAPRIL
     Indication: HYPERTENSION
     Dosage: 20 MILLIGRAM DAILY;
     Route: 048
     Dates: start: 201604, end: 20160707

REACTIONS (4)
  - Angioedema [Recovered/Resolved]
  - Cough [Recovered/Resolved]
  - Palatal oedema [Recovered/Resolved]
  - Lip oedema [Recovered/Resolved]

NARRATIVE: CASE EVENT DATE: 2016
